FAERS Safety Report 9757209 (Version 4)
Quarter: 2014Q1

REPORT INFORMATION
  Report Type: Report from Study
  Country: JP (occurrence: JP)
  Receive Date: 20131213
  Receipt Date: 20140314
  Transmission Date: 20141002
  Serious: Yes (Death, Other)
  Sender: FDA-Public Use
  Company Number: JP-TAKEDA-2013TUS003148

PATIENT
  Sex: 0

DRUGS (6)
  1. FEBURIC [Suspect]
     Indication: HYPERURICAEMIA
     Dosage: 10 MG, QD
     Route: 048
     Dates: start: 20121121, end: 20121204
  2. FEBURIC [Suspect]
     Dosage: 20 MG, QD
     Route: 048
     Dates: start: 20121205, end: 20130305
  3. FEBURIC [Suspect]
     Dosage: 40 MG, QD
     Route: 048
     Dates: start: 20130306, end: 20130515
  4. EVISTA [Concomitant]
     Indication: OSTEOPOROSIS
     Dosage: 60 MG, QD
     Route: 048
     Dates: start: 20120111, end: 20130508
  5. ANTIDIABETIC AGENTS [Concomitant]
     Indication: DIABETES MELLITUS
     Route: 065
  6. ANTIHYPERLIPIDEMIC AGENT [Concomitant]
     Indication: HYPERLIPIDAEMIA
     Route: 065

REACTIONS (1)
  - Cerebral infarction [Fatal]
